FAERS Safety Report 8622594-2 (Version None)
Quarter: 2012Q3

REPORT INFORMATION
  Report Type: 
  Country: None (occurrence: None)
  Receive Date: 20120810
  Receipt Date: 20120725
  Transmission Date: 20120928
  Serious: Yes (Hospitalization, Other)
  Sender: FDA-Public Use
  Company Number: 2012MA009255

PATIENT
  Age: 34 Year
  Sex: Female

DRUGS (1)
  1. FEVERALL [Suspect]

REACTIONS (18)
  - AMYLASE INCREASED [None]
  - BLOOD PHOSPHORUS DECREASED [None]
  - LEUKOCYTOSIS [None]
  - PROTHROMBIN TIME PROLONGED [None]
  - BLOOD CHLORIDE INCREASED [None]
  - ALANINE AMINOTRANSFERASE INCREASED [None]
  - CLONUS [None]
  - HYPERREFLEXIA [None]
  - HAEMODIALYSIS [None]
  - ABNORMAL BEHAVIOUR [None]
  - COMA SCALE ABNORMAL [None]
  - GENERAL PHYSICAL HEALTH DETERIORATION [None]
  - AGGRESSION [None]
  - BLOOD GLUCOSE INCREASED [None]
  - SOMNOLENCE [None]
  - ACIDOSIS [None]
  - BLOOD BICARBONATE DECREASED [None]
  - HYPOTENSION [None]
